FAERS Safety Report 17020792 (Version 1)
Quarter: 2019Q4

REPORT INFORMATION
  Report Type: Spontaneous
  Country: US (occurrence: US)
  Receive Date: 20191112
  Receipt Date: 20191112
  Transmission Date: 20200122
  Serious: No
  Sender: FDA-Public Use
  Company Number: US-SA-2019SA305937

PATIENT
  Age: 24 Year
  Sex: Male

DRUGS (3)
  1. AVEENO ANTI-ITCH [CALAMINE;PRAMOCAINE HYDROCHLORIDE] [Concomitant]
  2. DUPIXENT [Suspect]
     Active Substance: DUPILUMAB
     Indication: DERMATITIS ATOPIC
     Dosage: 300 MG, QOW
     Route: 058
     Dates: start: 2019
  3. CORTISONE [Concomitant]
     Active Substance: CORTISONE

REACTIONS (1)
  - Dermatitis atopic [Unknown]

NARRATIVE: CASE EVENT DATE: 2019
